FAERS Safety Report 6050760-1 (Version None)
Quarter: 2009Q1

REPORT INFORMATION
  Report Type: 
  Country: None (occurrence: None)
  Receive Date: 20090121
  Receipt Date: 20090121
  Transmission Date: 20090719
  Serious: Yes (Other)
  Sender: FDA-Public Use
  Company Number: None

PATIENT
  Age: 40 Year
  Sex: Female
  Weight: 72.5755 kg

DRUGS (1)
  1. LYRICA [Suspect]
     Indication: PAIN
     Dosage: 1-3 DAILY DAILY PO
     Route: 048
     Dates: start: 20080108, end: 20080117

REACTIONS (6)
  - CHILLS [None]
  - FEELING ABNORMAL [None]
  - MOOD ALTERED [None]
  - MOOD SWINGS [None]
  - SUICIDAL IDEATION [None]
  - TINNITUS [None]
